FAERS Safety Report 18296812 (Version 2)
Quarter: 2020Q3

REPORT INFORMATION
  Report Type: Spontaneous
  Country: ES (occurrence: ES)
  Receive Date: 20200922
  Receipt Date: 20200924
  Transmission Date: 20201103
  Serious: Yes (Death)
  Sender: FDA-Public Use
  Company Number: ES-CELGENEUS-ESP-20200905294

PATIENT
  Sex: Female

DRUGS (1)
  1. AG?221 [Suspect]
     Active Substance: ENASIDENIB
     Indication: ACUTE MYELOID LEUKAEMIA
     Dosage: DOSE (STRENGTH) REQUESTED: 22
     Route: 048
     Dates: start: 20190619

REACTIONS (1)
  - Acute myeloid leukaemia [Fatal]
